FAERS Safety Report 20632961 (Version 3)
Quarter: 2022Q2

REPORT INFORMATION
  Report Type: Spontaneous
  Country: US (occurrence: None)
  Receive Date: 20220324
  Receipt Date: 20220621
  Transmission Date: 20220721
  Serious: Yes (Hospitalization, Other)
  Sender: FDA-Public Use
  Company Number: US-ROCHE-3051962

PATIENT
  Age: 67 Year
  Sex: Male
  Weight: 88.6 kg

DRUGS (15)
  1. TAMIFLU [Suspect]
     Active Substance: OSELTAMIVIR PHOSPHATE
     Indication: Product used for unknown indication
     Route: 065
     Dates: start: 20220309
  2. LEVOFLOXACIN [Concomitant]
     Active Substance: LEVOFLOXACIN
  3. METFORMIN [Concomitant]
     Active Substance: METFORMIN HYDROCHLORIDE
  4. PANTOPRAZOLE [Concomitant]
     Active Substance: PANTOPRAZOLE
  5. URSODIOL [Concomitant]
     Active Substance: URSODIOL
  6. VALACYCLOVIR [Concomitant]
     Active Substance: VALACYCLOVIR HYDROCHLORIDE
  7. VORICONAZOLE [Concomitant]
     Active Substance: VORICONAZOLE
  8. INSULIN GLARGINE [Concomitant]
     Active Substance: INSULIN GLARGINE
  9. MAGNESIUM CITRATE [Concomitant]
     Active Substance: MAGNESIUM CITRATE
  10. SUPER SELENIUM COMPLEX [Concomitant]
     Dosage: 200 MCG
  11. VITAMIN C [Concomitant]
     Active Substance: ASCORBIC ACID
  12. MAGNESIUM OXIDE [Concomitant]
     Active Substance: MAGNESIUM OXIDE
  13. SITAGLIPTIN [Concomitant]
     Active Substance: SITAGLIPTIN
  14. AMIODARONE [Concomitant]
     Active Substance: AMIODARONE
  15. LINEZOLID [Concomitant]
     Active Substance: LINEZOLID

REACTIONS (3)
  - Respiratory failure [Not Recovered/Not Resolved]
  - Right ventricular failure [Not Recovered/Not Resolved]
  - Pneumonia [Unknown]

NARRATIVE: CASE EVENT DATE: 20220313
